FAERS Safety Report 6331824-1 (Version None)
Quarter: 2009Q3

REPORT INFORMATION
  Report Type: 
  Country: None (occurrence: None)
  Receive Date: 20090826
  Receipt Date: 20090818
  Transmission Date: 20100115
  Serious: Yes (Life-Threatening, Hospitalization)
  Sender: FDA-Public Use
  Company Number: A0803387A

PATIENT
  Age: 62 Year
  Sex: Male
  Weight: 95.3007 kg

DRUGS (6)
  1. CAFFEINE CITRATE [Suspect]
     Indication: SUPPLEMENTATION THERAPY
     Dosage: 1000 MG / IN THE MORNING / ORAL
     Route: 048
     Dates: start: 20080101, end: 20090401
  2. CELECOXIB [Suspect]
     Indication: OSTEOARTHRITIS
     Dosage: 200 MG / PER DAY / ORAL
     Route: 048
     Dates: start: 20090120, end: 20090417
  3. ATORVASTATIN CALCIUM [Concomitant]
  4. CYCLOBENZAPRINE HCL [Concomitant]
  5. NAPROXEN [Concomitant]
  6. CENTRUM [Concomitant]

REACTIONS (3)
  - CEREBRAL INFARCTION [None]
  - DEPRESSION [None]
  - SELF-MEDICATION [None]
